FAERS Safety Report 20079850 (Version 2)
Quarter: 2021Q4

REPORT INFORMATION
  Report Type: Spontaneous
  Country: NL (occurrence: NL)
  Receive Date: 20211117
  Receipt Date: 20211119
  Transmission Date: 20220303
  Serious: Yes (Hospitalization)
  Sender: FDA-Public Use
  Company Number: None

PATIENT
  Age: 49 Year
  Sex: Female
  Weight: 64 kg

DRUGS (3)
  1. NAPROXEN [Suspect]
     Active Substance: NAPROXEN
     Indication: Chest pain
     Dosage: UNK (3X PER DAG 1 STUK)
     Dates: start: 20210728, end: 20210805
  2. PFIZER-BIONTECH COVID-19 VACCINE [Suspect]
     Active Substance: TOZINAMERAN
     Indication: COVID-19 immunisation
     Dosage: 1 DOSAGE FORM
     Dates: start: 20210729
  3. OMEPRAZOL                          /00661201/ [Concomitant]
     Indication: Product used for unknown indication
     Dosage: 20 MG, PEPTIC ULCER:CAPSULE
     Dates: start: 20210728, end: 20210805

REACTIONS (5)
  - Erythema multiforme [Recovering/Resolving]
  - Myalgia [Unknown]
  - Pyrexia [Recovered/Resolved]
  - Headache [Unknown]
  - Malaise [Unknown]

NARRATIVE: CASE EVENT DATE: 20210730
